FAERS Safety Report 18449453 (Version 1)
Quarter: 2020Q4

REPORT INFORMATION
  Report Type: Spontaneous
  Country: US (occurrence: US)
  Receive Date: 20201102
  Receipt Date: 20201102
  Transmission Date: 20210114
  Serious: No
  Sender: FDA-Public Use
  Company Number: US-SA-2020SA306625

PATIENT

DRUGS (2)
  1. PREDNISONE. [Concomitant]
     Active Substance: PREDNISONE
     Dosage: UNK
  2. KEVZARA [Suspect]
     Active Substance: SARILUMAB
     Indication: RHEUMATOID ARTHRITIS
     Dosage: 200 MG, QW
     Route: 058
     Dates: start: 202008

REACTIONS (3)
  - Product use issue [Unknown]
  - Saliva discolouration [Not Recovered/Not Resolved]
  - Mouth haemorrhage [Not Recovered/Not Resolved]

NARRATIVE: CASE EVENT DATE: 202008
